FAERS Safety Report 18379064 (Version 4)
Quarter: 2021Q2

REPORT INFORMATION
  Report Type: Spontaneous
  Country: PT (occurrence: PT)
  Receive Date: 20201014
  Receipt Date: 20210514
  Transmission Date: 20210717
  Serious: Yes (Hospitalization, Other)
  Sender: FDA-Public Use
  Company Number: PT-AUROBINDO-AUR-APL-2020-051870

PATIENT
  Age: 81 Year
  Sex: Female

DRUGS (2)
  1. AMIODARONE [Suspect]
     Active Substance: AMIODARONE
     Indication: ATRIAL FIBRILLATION
     Dosage: 100 MILLIGRAM, ONCE A DAY
     Route: 065
  2. AMIODARONE [Suspect]
     Active Substance: AMIODARONE
     Dosage: 1000 MILLIGRAM, ONCE A DAY
     Route: 065

REACTIONS (10)
  - Pleuritic pain [Recovering/Resolving]
  - Tachypnoea [Recovering/Resolving]
  - Monocytosis [Recovering/Resolving]
  - Dyspnoea [Recovering/Resolving]
  - Crepitations [Recovering/Resolving]
  - Respiratory failure [Recovering/Resolving]
  - Lung infiltration [Recovering/Resolving]
  - Hypersensitivity pneumonitis [Recovering/Resolving]
  - Cough [Recovering/Resolving]
  - Respiratory tract infection [Recovering/Resolving]
